FAERS Safety Report 7603000-3 (Version None)
Quarter: 2011Q3

REPORT INFORMATION
  Report Type: 
  Country: None (occurrence: None)
  Receive Date: 20110712
  Receipt Date: 20110630
  Transmission Date: 20111222
  Serious: Yes (Hospitalization)
  Sender: FDA-Public Use
  Company Number: BR-SANOFI-AVENTIS-2011SA041828

PATIENT
  Age: 3 Year
  Sex: Male
  Weight: 15 kg

DRUGS (1)
  1. NALIDIXIC ACID [Suspect]
     Dosage: DOSE: HALF OF THE FLASK
     Route: 048
     Dates: start: 20110630, end: 20110630

REACTIONS (4)
  - SOMNOLENCE [None]
  - AGITATION [None]
  - MYDRIASIS [None]
  - ACCIDENTAL OVERDOSE [None]
